FAERS Safety Report 23074166 (Version 1)
Quarter: 2023Q4

REPORT INFORMATION
  Report Type: Spontaneous
  Country: FR (occurrence: FR)
  Receive Date: 20231017
  Receipt Date: 20231017
  Transmission Date: 20240110
  Serious: Yes (Life-Threatening, Hospitalization, Disabling)
  Sender: FDA-Public Use
  Company Number: None

PATIENT
  Age: 56 Year
  Sex: Female
  Weight: 42 kg

DRUGS (4)
  1. CARBOPLATIN [Suspect]
     Active Substance: CARBOPLATIN
     Indication: Bronchial carcinoma
     Dosage: 10 MG/ML, SOLUTION FOR INFUSION
     Dates: start: 20230511, end: 20230714
  2. ALIMTA [Suspect]
     Active Substance: PEMETREXED DISODIUM
     Indication: Bronchial carcinoma
     Dosage: 500 MG, POWDER FOR CONCENTRATE FOR SOLUTION FOR INFUSION
     Dates: start: 20230511, end: 20230714
  3. PANTOPRAZOLE [Suspect]
     Active Substance: PANTOPRAZOLE
     Indication: Prophylaxis against gastrointestinal ulcer
     Dosage: 20 MG, GASTRO-RESISTANT TABLET
     Dates: start: 20230601, end: 20230714
  4. PEMBROLIZUMAB [Suspect]
     Active Substance: PEMBROLIZUMAB
     Indication: Bronchial carcinoma
     Dates: start: 20230511, end: 20230714

REACTIONS (6)
  - Pancytopenia [Recovering/Resolving]
  - Acute kidney injury [Recovering/Resolving]
  - Thyroiditis [Not Recovered/Not Resolved]
  - Sepsis [Recovering/Resolving]
  - Nephropathy [Recovering/Resolving]
  - Mucosal inflammation [Not Recovered/Not Resolved]

NARRATIVE: CASE EVENT DATE: 20230622
